FAERS Safety Report 12283377 (Version 2)
Quarter: 2016Q2

REPORT INFORMATION
  Report Type: Spontaneous
  Country: US (occurrence: US)
  Receive Date: 20160419
  Receipt Date: 20160503
  Transmission Date: 20160815
  Serious: Yes (Hospitalization)
  Sender: FDA-Public Use
  Company Number: US-PFIZER INC-2016168738

PATIENT
  Age: 68 Year
  Sex: Male

DRUGS (2)
  1. PREPARATION H MEDICATED WIPES [Suspect]
     Active Substance: WITCH HAZEL
     Dosage: 1 DF, DAILY; ONE WIPE APPLIED TO ANUS EVERY DAY
     Route: 054
     Dates: start: 20160316
  2. PREPARATION H MEDICATED WIPES [Suspect]
     Active Substance: WITCH HAZEL
     Indication: ANORECTAL DISCOMFORT
     Dosage: UNK

REACTIONS (3)
  - Application site irritation [Unknown]
  - Product odour abnormal [Unknown]
  - Poor quality drug administered [Unknown]

NARRATIVE: CASE EVENT DATE: 201603
